FAERS Safety Report 10052928 (Version 3)
Quarter: 2014Q2

REPORT INFORMATION
  Report Type: Spontaneous
  Country: DE (occurrence: None)
  Receive Date: 20140331
  Receipt Date: 20140501
  Transmission Date: 20141212
  Serious: Yes (Disabling)
  Sender: FDA-Public Use
  Company Number: 2014MPI00257

PATIENT
  Age: 34 Year
  Sex: Male
  Weight: 57 kg

DRUGS (2)
  1. ADCETRIS [Suspect]
     Indication: NON-HODGKIN^S LYMPHOMA
     Dates: start: 20130923, end: 20140107
  2. IMMUNOSUPPRESSANTS [Concomitant]

REACTIONS (3)
  - Pneumomediastinum [None]
  - Graft versus host disease in lung [None]
  - Pneumomediastinum [None]
